FAERS Safety Report 7980161-8 (Version None)
Quarter: 2011Q4

REPORT INFORMATION
  Report Type: 
  Country: None (occurrence: None)
  Receive Date: 20111212
  Receipt Date: 20111202
  Transmission Date: 20120403
  Serious: Yes (Hospitalization, Other)
  Sender: FDA-Public Use
  Company Number: 2011P1010147

PATIENT
  Age: 80 Year
  Sex: Male
  Weight: 126 kg

DRUGS (5)
  1. KEPPRA [Concomitant]
  2. FUROSEMIDE [Concomitant]
  3. BETAPACE [Concomitant]
  4. METHYLPREDNISOLONE 4MG TAB [Suspect]
     Indication: RASH
     Dosage: TAPERED OVER 6 DAYS; ;PO
     Route: 048
     Dates: start: 20111106, end: 20111101
  5. ASPIRIN [Concomitant]

REACTIONS (3)
  - DEEP VEIN THROMBOSIS [None]
  - ARTHRALGIA [None]
  - FAECAL INCONTINENCE [None]
